FAERS Safety Report 24891885 (Version 1)
Quarter: 2025Q1

REPORT INFORMATION
  Report Type: Report from Study
  Country: CA (occurrence: CA)
  Receive Date: 20250127
  Receipt Date: 20250127
  Transmission Date: 20250409
  Serious: No
  Sender: ROCHE
  Company Number: CA-ROCHE-2798705

PATIENT
  Age: 55 Year
  Sex: Male

DRUGS (2)
  1. OCREVUS [Suspect]
     Active Substance: OCRELIZUMAB
     Indication: Primary progressive multiple sclerosis
     Dosage: 300 MG AT DAY 0 AND 14, THEN 600 MG EVERY 6 MONTH, LAST DATE OF TREATMENT 22/NOV/2021. CONCENTRATE F
     Route: 040
     Dates: start: 20190503
  2. OCREVUS [Suspect]
     Active Substance: OCRELIZUMAB
     Route: 040

REACTIONS (9)
  - Fatigue [Not Recovered/Not Resolved]
  - Poor quality sleep [Not Recovered/Not Resolved]
  - Asthenia [Not Recovered/Not Resolved]
  - Muscular weakness [Not Recovered/Not Resolved]
  - Gait disturbance [Unknown]
  - Walking disability [Unknown]
  - Fall [Unknown]
  - Limb discomfort [Unknown]
  - Influenza [Unknown]
